FAERS Safety Report 5199987-1 (Version None)
Quarter: 2007Q1

REPORT INFORMATION
  Report Type: 
  Country: None (occurrence: None)
  Receive Date: 20070105
  Receipt Date: 20070102
  Transmission Date: 20070707
  Serious: Yes (Life-Threatening)
  Sender: FDA-Public Use
  Company Number: PHRM2007FR00440

PATIENT
  Age: 72 Year
  Sex: Male
  Weight: 73 kg

DRUGS (6)
  1. GLEEVEC [Suspect]
     Indication: CHRONIC MYELOID LEUKAEMIA
     Dosage: 400 MG DAILY
     Route: 048
     Dates: start: 20010202, end: 20061128
  2. ARACYTINE [Suspect]
     Indication: CHRONIC MYELOID LEUKAEMIA
     Dosage: 20 MG/DAY/10 DAYS/MONTH
     Route: 058
     Dates: start: 19981001, end: 19991001
  3. ARACYTINE [Suspect]
     Dosage: 10 MG/DAY/10 DAYS/MONTH
     Route: 058
     Dates: start: 19991001
  4. HYDREA [Suspect]
     Indication: CHRONIC MYELOID LEUKAEMIA
     Route: 048
     Dates: start: 19980101
  5. INTERFERON ALFA [Suspect]
     Indication: CHRONIC MYELOID LEUKAEMIA
     Dosage: 5 MU/M2/DAY
     Route: 058
     Dates: start: 19980901, end: 20000410
  6. FLECAINIDE ACETATE [Concomitant]
     Indication: ATRIAL FIBRILLATION

REACTIONS (3)
  - HODGKIN'S DISEASE [None]
  - LYMPHADENOPATHY [None]
  - NEURITIS [None]
